FAERS Safety Report 8062502-9 (Version None)
Quarter: 2012Q1

REPORT INFORMATION
  Report Type: 
  Country: None (occurrence: None)
  Receive Date: 20120123
  Receipt Date: 20120111
  Transmission Date: 20120608
  Serious: Yes (Hospitalization)
  Sender: FDA-Public Use
  Company Number: US-BAYER-2011-056046

PATIENT
  Age: 23 Year
  Sex: Female
  Weight: 50 kg

DRUGS (9)
  1. YASMIN [Suspect]
     Indication: ACNE
     Dosage: UNK
     Dates: start: 20040101, end: 20060101
  2. SINGULAIR [Concomitant]
     Dosage: 100 MG, UNK
  3. GFN/DM [Concomitant]
  4. ALLERX D [Concomitant]
  5. LEVAQUIN [Concomitant]
     Dosage: 500 MG, UNK
  6. FLOVENT [Concomitant]
     Indication: ASTHMA
  7. BUTALBITAL [Concomitant]
     Dosage: UNK UNK, PRN
  8. ECONAZOLE NITRATE [Concomitant]
  9. ALBUTEROL [Concomitant]
     Dosage: UNK UNK, PRN

REACTIONS (3)
  - PAIN [None]
  - DEEP VEIN THROMBOSIS [None]
  - INJURY [None]
